FAERS Safety Report 4996723-6 (Version None)
Quarter: 2006Q2

REPORT INFORMATION
  Report Type: 
  Country: None (occurrence: None)
  Receive Date: 20060509
  Receipt Date: 20050620
  Transmission Date: 20061013
  Serious: Yes (Hospitalization, Disabling)
  Sender: FDA-Public Use
  Company Number: US-MERCK-0506USA02951

PATIENT
  Age: 55 Year
  Sex: Female
  Weight: 100 kg

DRUGS (3)
  1. VIOXX [Suspect]
     Indication: ARTHRALGIA
     Route: 048
     Dates: start: 20010101, end: 20010101
  2. VIOXX [Suspect]
     Indication: MYALGIA
     Route: 048
     Dates: start: 20010101, end: 20010101
  3. ASPIRIN [Concomitant]
     Route: 065

REACTIONS (15)
  - ACUTE MYOCARDIAL INFARCTION [None]
  - ANAEMIA [None]
  - ANGINA UNSTABLE [None]
  - AORTIC ANEURYSM [None]
  - ATRIAL FIBRILLATION [None]
  - COUGH [None]
  - FATIGUE [None]
  - GASTRITIS [None]
  - GASTROINTESTINAL HAEMORRHAGE [None]
  - HERPES ZOSTER [None]
  - HYPERCHOLESTEROLAEMIA [None]
  - HYPERTENSION [None]
  - MALAISE [None]
  - PERIPHERAL VASCULAR DISORDER [None]
  - RHINITIS [None]
